FAERS Safety Report 6793211-1 (Version None)
Quarter: 2010Q2

REPORT INFORMATION
  Report Type: 
  Country: None (occurrence: None)
  Receive Date: 20100624
  Receipt Date: 20090824
  Transmission Date: 20101027
  Serious: Yes (Other)
  Sender: FDA-Public Use
  Company Number: US-MYLANLABS-2009S1014177

PATIENT
  Age: 43 Year
  Sex: Male

DRUGS (8)
  1. CLOZAPINE [Suspect]
     Route: 048
     Dates: start: 20061003, end: 20090731
  2. LIPITOR [Concomitant]
  3. DDAVP [Concomitant]
  4. DILANTIN [Concomitant]
  5. MULTI-VITAMIN [Concomitant]
  6. PAXIL [Concomitant]
  7. SEROQUEL [Concomitant]
  8. DEPAKOTE [Concomitant]

REACTIONS (1)
  - GRANULOCYTOPENIA [None]
